FAERS Safety Report 8132402-4 (Version None)
Quarter: 2012Q1

REPORT INFORMATION
  Report Type: 
  Country: None (occurrence: None)
  Receive Date: 20120213
  Receipt Date: 20120201
  Transmission Date: 20120608
  Serious: Yes (Hospitalization, Other)
  Sender: FDA-Public Use
  Company Number: US-ELI_LILLY_AND_COMPANY-US201112002837

PATIENT
  Sex: Female
  Weight: 47.619 kg

DRUGS (7)
  1. ASPIRIN [Concomitant]
     Dosage: UNK
  2. ALTACE [Concomitant]
     Dosage: UNK
  3. TRIAMTERENE AND HYDROCHLOROTHIAZID [Concomitant]
     Dosage: UNK
  4. FORTEO [Suspect]
     Dosage: UNK UNK, QD
  5. FORTEO [Suspect]
     Indication: OSTEOPOROSIS
     Dosage: UNK UNK, QD
  6. MULTI-VITAMIN [Concomitant]
     Dosage: UNK
  7. NEXIUM [Concomitant]
     Dosage: UNK

REACTIONS (4)
  - MEMORY IMPAIRMENT [None]
  - PULMONARY THROMBOSIS [None]
  - EMPHYSEMA [None]
  - INTENTIONAL DRUG MISUSE [None]
